FAERS Safety Report 8775804 (Version 1)
Quarter: 2012Q4

REPORT INFORMATION
  Report Type: 
  Country: DE (occurrence: DE)
  Receive Date: 20120910
  Receipt Date: 20120910
  Transmission Date: 20130627
  Serious: Yes (Hospitalization)
  Sender: FDA-Public Use
  Company Number: DE-ASTRAZENECA-2012SE27768

PATIENT
  Sex: Female
  Weight: 66 kg

DRUGS (1)
  1. BELOC-ZOK MITE [Suspect]
     Indication: TACHYCARDIA
     Route: 048
     Dates: start: 201202, end: 201205

REACTIONS (3)
  - Nystagmus [Recovered/Resolved]
  - Musculoskeletal stiffness [Unknown]
  - Vertigo [Recovered/Resolved]
